FAERS Safety Report 10258086 (Version 1)
Quarter: 2014Q2

REPORT INFORMATION
  Report Type: Spontaneous
  Country: US (occurrence: US)
  Receive Date: 20140625
  Receipt Date: 20140625
  Transmission Date: 20141212
  Serious: Yes (Hospitalization)
  Sender: FDA-Public Use
  Company Number: US-JNJFOC-20140613010

PATIENT
  Age: 62 Year
  Sex: Male

DRUGS (7)
  1. XARELTO [Suspect]
     Indication: THROMBOSIS PROPHYLAXIS
     Route: 048
     Dates: start: 201402, end: 20140612
  2. SIMVASTATIN [Concomitant]
     Route: 065
  3. OXYCODONE [Concomitant]
     Route: 065
  4. METFORMIN [Concomitant]
     Route: 065
  5. NEXIUM [Concomitant]
     Route: 065
  6. LOTENSIN [Concomitant]
     Route: 065
  7. ABILIFY [Concomitant]
     Route: 065

REACTIONS (1)
  - Pulmonary embolism [Unknown]
